FAERS Safety Report 10763839 (Version 1)
Quarter: 2015Q1

REPORT INFORMATION
  Report Type: Spontaneous
  Country: US (occurrence: US)
  Receive Date: 20150204
  Receipt Date: 20150204
  Transmission Date: 20150721
  Serious: Yes (Hospitalization)
  Sender: FDA-Public Use
  Company Number: US-ACTELION-A-NJ2015-110708

PATIENT
  Age: 58 Year
  Sex: Female

DRUGS (16)
  1. ALDACTONE [Concomitant]
     Active Substance: SPIRONOLACTONE
     Dosage: 25 UNK, UNK
  2. VELETRI [Suspect]
     Active Substance: EPOPROSTENOL
     Indication: PULMONARY ARTERIAL HYPERTENSION
     Dosage: 70 NG/KG, PER MIN
     Route: 042
     Dates: start: 20141230
  3. REMODULIN [Suspect]
     Active Substance: TREPROSTINIL
     Indication: PRODUCT USED FOR UNKNOWN INDICATION
     Route: 048
  4. ZOFRAN [Concomitant]
     Active Substance: ONDANSETRON HYDROCHLORIDE
     Dosage: 4 UNK, UNK
  5. REVATIO [Concomitant]
     Active Substance: SILDENAFIL CITRATE
     Dosage: 20 UNK, TID
  6. NORCO [Concomitant]
     Active Substance: ACETAMINOPHEN\HYDROCODONE BITARTRATE
     Dosage: UNK, PRN
  7. FLONASE [Concomitant]
     Active Substance: FLUTICASONE PROPIONATE
  8. LETAIRIS [Concomitant]
     Active Substance: AMBRISENTAN
  9. SPIRIVA [Concomitant]
     Active Substance: TIOTROPIUM BROMIDE MONOHYDRATE
  10. XARELTO [Concomitant]
     Active Substance: RIVAROXABAN
  11. K-DUR [Concomitant]
     Active Substance: POTASSIUM CHLORIDE
     Dosage: 20 MEQ, UNK
  12. LISINOPRIL. [Concomitant]
     Active Substance: LISINOPRIL
     Dosage: 5 UNK, UNK
  13. COREG [Concomitant]
     Active Substance: CARVEDILOL
     Dosage: 6.25 UNK, UNK
  14. ADCIRCA [Concomitant]
     Active Substance: TADALAFIL
  15. LASIX [Concomitant]
     Active Substance: FUROSEMIDE
     Dosage: 80 UNK, UNK
  16. ZAROXOLYN [Concomitant]
     Active Substance: METOLAZONE

REACTIONS (7)
  - Fluid retention [Unknown]
  - Asthenia [Unknown]
  - Adverse drug reaction [Unknown]
  - Pericardial effusion [Unknown]
  - Pericardial drainage [Unknown]
  - Chest pain [Unknown]
  - Dyspnoea [Unknown]

NARRATIVE: CASE EVENT DATE: 20141231
